FAERS Safety Report 5497334-9 (Version None)
Quarter: 2007Q4

REPORT INFORMATION
  Report Type: 
  Country: None (occurrence: None)
  Receive Date: 20071025
  Receipt Date: 20061003
  Transmission Date: 20080405
  Serious: No
  Sender: FDA-Public Use
  Company Number: A0622317A

PATIENT
  Age: 73 Year
  Sex: Female

DRUGS (5)
  1. ADVAIR DISKUS 100/50 [Suspect]
     Indication: EMPHYSEMA
     Dosage: 1PUFF TWICE PER DAY
     Route: 055
  2. COMBIVENT [Concomitant]
  3. PAROXETINE [Concomitant]
  4. TRAZODONE HCL [Concomitant]
  5. DUONEB [Concomitant]

REACTIONS (10)
  - CHEST DISCOMFORT [None]
  - DIZZINESS [None]
  - DYSPNOEA [None]
  - EAR PAIN [None]
  - FACIAL PAIN [None]
  - FALL [None]
  - FEELING DRUNK [None]
  - PERFORMANCE STATUS DECREASED [None]
  - SOMNOLENCE [None]
  - TREMOR [None]
